FAERS Safety Report 7804758-0 (Version None)
Quarter: 2011Q4

REPORT INFORMATION
  Report Type: 
  Country: None (occurrence: None)
  Receive Date: 20111010
  Receipt Date: 20111003
  Transmission Date: 20120403
  Serious: Yes (Death, Disabling, Other)
  Sender: FDA-Public Use
  Company Number: US-CELGENEUS-163-21880-10011311

PATIENT
  Sex: Male

DRUGS (10)
  1. ASPIRIN [Concomitant]
     Route: 065
  2. PLAVIX [Concomitant]
     Route: 065
  3. LASIX [Concomitant]
     Route: 065
  4. ALLOPURINOL [Concomitant]
     Route: 065
  5. REVLIMID [Suspect]
     Dosage: 5 MILLIGRAM
     Route: 048
     Dates: start: 20091201, end: 20100101
  6. HYDROXYZINE [Concomitant]
     Route: 065
  7. REVLIMID [Suspect]
     Dosage: 5 MILLIGRAM
     Route: 048
     Dates: start: 20080301
  8. NT6 [Concomitant]
     Route: 065
  9. NORVASC [Concomitant]
     Route: 065
  10. REVLIMID [Suspect]
     Dosage: 10 MILLIGRAM
     Route: 048
     Dates: start: 20071201

REACTIONS (9)
  - NEPHROPATHY [None]
  - PERIPHERAL ARTERIAL OCCLUSIVE DISEASE [None]
  - FALL [None]
  - CARDIAC FAILURE CONGESTIVE [None]
  - CHRONIC OBSTRUCTIVE PULMONARY DISEASE [None]
  - DEMENTIA [None]
  - ACUTE MYOCARDIAL INFARCTION [None]
  - PELVIC FRACTURE [None]
  - PERFORMANCE STATUS DECREASED [None]
